FAERS Safety Report 25427322 (Version 2)
Quarter: 2025Q3

REPORT INFORMATION
  Report Type: Spontaneous
  Country: US (occurrence: US)
  Receive Date: 20250612
  Receipt Date: 20250808
  Transmission Date: 20251020
  Serious: No
  Sender: IPSEN BIOPHARMACEUTICALS, INC.
  Company Number: US-IPSEN Group, Research and Development-2025-13498

PATIENT
  Age: 66 Year
  Sex: Female
  Weight: 62 kg

DRUGS (8)
  1. IQIRVO [Suspect]
     Active Substance: ELAFIBRANOR
     Indication: Primary biliary cholangitis
     Dates: start: 20241231
  2. IQIRVO [Suspect]
     Active Substance: ELAFIBRANOR
     Dates: start: 20250521, end: 20250621
  3. IQIRVO [Suspect]
     Active Substance: ELAFIBRANOR
     Dates: start: 20250705, end: 202507
  4. LANTUS [Concomitant]
     Active Substance: INSULIN GLARGINE
  5. URSODIOL [Concomitant]
     Active Substance: URSODIOL
     Indication: Primary biliary cholangitis
     Dosage: 500 MG IN MORNING AND 250 MG IN EVENING
  6. AZATHIOPRINE [Concomitant]
     Active Substance: AZATHIOPRINE
  7. VITAMIN D [Concomitant]
     Active Substance: VITAMIN D NOS
  8. HUMALOG [Concomitant]
     Active Substance: INSULIN LISPRO

REACTIONS (9)
  - Peripheral swelling [Not Recovered/Not Resolved]
  - Abdominal pain [Unknown]
  - Fatigue [Recovering/Resolving]
  - Muscle spasms [Recovering/Resolving]
  - Dry eye [Unknown]
  - Dry mouth [Unknown]
  - Weight increased [Unknown]
  - Anxiety [Unknown]
  - Skin fissures [Unknown]

NARRATIVE: CASE EVENT DATE: 20250521
